FAERS Safety Report 11503289 (Version 4)
Quarter: 2016Q1

REPORT INFORMATION
  Report Type: Spontaneous
  Country: US (occurrence: US)
  Receive Date: 20150914
  Receipt Date: 20160212
  Transmission Date: 20160525
  Serious: Yes (Other)
  Sender: FDA-Public Use
  Company Number: US-ASTELLAS-2015US026090

PATIENT
  Age: 76 Year
  Sex: Male

DRUGS (1)
  1. XTANDI [Suspect]
     Active Substance: ENZALUTAMIDE
     Indication: PROSTATE CANCER
     Route: 048
     Dates: start: 2015

REACTIONS (8)
  - Malaise [Unknown]
  - Skin cancer [Recovered/Resolved]
  - General physical health deterioration [Unknown]
  - Pain [Unknown]
  - Fatigue [Not Recovered/Not Resolved]
  - Fatigue [Recovering/Resolving]
  - Blood glucose decreased [Unknown]
  - Drug dose omission [Unknown]

NARRATIVE: CASE EVENT DATE: 20150330
